FAERS Safety Report 4355748-4 (Version None)
Quarter: 2004Q2

REPORT INFORMATION
  Report Type: 
  Country: None (occurrence: None)
  Receive Date: 20040510
  Receipt Date: 20040510
  Transmission Date: 20050107
  Serious: Yes (Disabling)
  Sender: FDA-Public Use
  Company Number: None

PATIENT
  Age: 76 Year
  Sex: Female
  Weight: 59.8748 kg

DRUGS (1)
  1. LIPITOR [Suspect]
     Indication: HYPERLIPIDAEMIA
     Dosage: 10 MG QD
     Dates: start: 20041103, end: 20040301

REACTIONS (5)
  - ABDOMINAL PAIN [None]
  - DIZZINESS [None]
  - INFLUENZA [None]
  - NAUSEA [None]
  - VOMITING [None]
